FAERS Safety Report 10529526 (Version 6)
Quarter: 2018Q3

REPORT INFORMATION
  Report Type: Report from Study
  Country: CA (occurrence: CA)
  Receive Date: 20141021
  Receipt Date: 20180710
  Transmission Date: 20181010
  Serious: Yes (Hospitalization, Other)
  Sender: FDA-Public Use
  Company Number: CA-ROCHE-1006309

PATIENT
  Age: 72 Year
  Sex: Female
  Weight: 79.8 kg

DRUGS (14)
  1. LETROZOLE. [Concomitant]
     Active Substance: LETROZOLE
  2. LORAZEPAM. [Concomitant]
     Active Substance: LORAZEPAM
     Route: 065
  3. LIPITOR [Concomitant]
     Active Substance: ATORVASTATIN CALCIUM
     Route: 065
  4. ZOPICLONE [Concomitant]
     Active Substance: ZOPICLONE
     Indication: INSOMNIA
     Dosage: AS REQUIRED
     Route: 048
     Dates: start: 20081217
  5. PREDNISONE. [Concomitant]
     Active Substance: PREDNISONE
     Route: 065
  6. RITUXAN [Suspect]
     Active Substance: RITUXIMAB
     Indication: RHEUMATOID ARTHRITIS
     Route: 042
     Dates: start: 20100819, end: 20100902
  7. TYLENOL EXTRA STRENGTH [Concomitant]
     Active Substance: ACETAMINOPHEN
     Indication: PAIN
     Dosage: 1?2 TABLETS AS REQUIRED
     Route: 048
     Dates: start: 2005
  8. ACETAMINOPHEN. [Concomitant]
     Active Substance: ACETAMINOPHEN
     Dosage: PRE?MEDICATION
     Route: 048
     Dates: start: 20100819, end: 20100902
  9. ACTEMRA [Suspect]
     Active Substance: TOCILIZUMAB
     Indication: RHEUMATOID ARTHRITIS
     Route: 042
     Dates: start: 20110323, end: 20170816
  10. DIPHENHYDRAMINE. [Concomitant]
     Active Substance: DIPHENHYDRAMINE
     Dosage: PRE?MEDICATION
     Route: 048
     Dates: start: 20100819, end: 20100902
  11. FOLIC ACID. [Concomitant]
     Active Substance: FOLIC ACID
     Route: 048
     Dates: start: 20080520
  12. METHOTREXATE. [Concomitant]
     Active Substance: METHOTREXATE
     Indication: ARTHRITIS
     Route: 048
     Dates: start: 20080520
  13. OMEGA 3 [Concomitant]
     Active Substance: OMEGA-3 FATTY ACIDS
     Route: 065
  14. METHYLPREDNISOLONE. [Concomitant]
     Active Substance: METHYLPREDNISOLONE
     Dosage: PRE?MEDICATION
     Route: 042
     Dates: start: 20100819, end: 20100902

REACTIONS (9)
  - Breast cancer [Recovering/Resolving]
  - Malaise [Unknown]
  - Therapeutic response decreased [Unknown]
  - Urinary tract infection [Unknown]
  - Depression [Not Recovered/Not Resolved]
  - Mental disorder [Unknown]
  - Herpes zoster [Recovering/Resolving]
  - Gallbladder disorder [Unknown]
  - Insomnia [Not Recovered/Not Resolved]

NARRATIVE: CASE EVENT DATE: 20111115
